FAERS Safety Report 9714138 (Version 2)
Quarter: 2015Q3

REPORT INFORMATION
  Report Type: Spontaneous
  Country: US (occurrence: US)
  Receive Date: 20131126
  Receipt Date: 20150803
  Transmission Date: 20151125
  Serious: No
  Sender: FDA-Public Use
  Company Number: US-GILEAD-2008-0018845

PATIENT
  Age: 19 Year
  Sex: Male
  Weight: 44.91 kg

DRUGS (11)
  1. COUMADIN [Concomitant]
     Active Substance: WARFARIN SODIUM
  2. IBUPROFEN. [Concomitant]
     Active Substance: IBUPROFEN
  3. XANAX [Concomitant]
     Active Substance: ALPRAZOLAM
  4. ENALAPRIL [Concomitant]
     Active Substance: ENALAPRIL
  5. STRATTERA [Concomitant]
     Active Substance: ATOMOXETINE HYDROCHLORIDE
  6. ZOLOFT [Concomitant]
     Active Substance: SERTRALINE HYDROCHLORIDE
  7. XOPENEX [Concomitant]
     Active Substance: LEVALBUTEROL HYDROCHLORIDE
  8. SOTALOL. [Concomitant]
     Active Substance: SOTALOL
  9. LETAIRIS [Suspect]
     Active Substance: AMBRISENTAN
     Indication: PULMONARY ARTERIAL HYPERTENSION
     Route: 048
     Dates: start: 20070808
  10. VIAGRA [Concomitant]
     Active Substance: SILDENAFIL CITRATE
  11. VENTAVIS [Concomitant]
     Active Substance: ILOPROST

REACTIONS (2)
  - Blood pressure decreased [Unknown]
  - Disturbance in attention [Unknown]
